FAERS Safety Report 4579756-3 (Version None)
Quarter: 2005Q1

REPORT INFORMATION
  Report Type: 
  Country: None (occurrence: None)
  Receive Date: 20050210
  Receipt Date: 20050203
  Transmission Date: 20050727
  Serious: Yes (Life-Threatening)
  Sender: FDA-Public Use
  Company Number: 2005AP00951

PATIENT

DRUGS (3)
  1. SEROQUEL [Suspect]
     Dosage: 25 MG DAIL PAR
  2. FLUOXETINE HYDROCHLORIDE [Suspect]
     Indication: DEPRESSION
     Dosage: 40 MG DAILY PAR
  3. SYNTOCINON [Concomitant]

REACTIONS (5)
  - BRADYCARDIA NEONATAL [None]
  - DRUG EXPOSURE DURING PREGNANCY [None]
  - HYPOTHERMIA NEONATAL [None]
  - NEONATAL APNOEIC ATTACK [None]
  - PREMATURE BABY [None]
